FAERS Safety Report 8529679-X (Version None)
Quarter: 2012Q3

REPORT INFORMATION
  Report Type: 
  Country: None (occurrence: None)
  Receive Date: 20120710
  Receipt Date: 20120625
  Transmission Date: 20120928
  Serious: Yes (Hospitalization)
  Sender: FDA-Public Use
  Company Number: DSJ-2012-11748

PATIENT
  Age: 64 Year
  Sex: Female

DRUGS (4)
  1. MEDICINES FOR DIABETES (DRUG USED IN DIABETES) [Concomitant]
  2. AMLODIPINE BESYLATE AND OLMESARTAN MEDOXOMIL [Suspect]
     Indication: HYPERTENSION
     Dosage: 40/10 MG (1 IN 1 D), PER ORAL
     Route: 048
     Dates: start: 20120601
  3. ESCITALOPRAM [Concomitant]
  4. MEDICINES FOR THYROID DISORDER (THYROID PREPARATIONS) [Concomitant]

REACTIONS (1)
  - JOINT ARTHROPLASTY [None]
